FAERS Safety Report 5853840-6 (Version None)
Quarter: 2008Q3

REPORT INFORMATION
  Report Type: 
  Country: None (occurrence: None)
  Receive Date: 20080822
  Receipt Date: 20080818
  Transmission Date: 20090109
  Serious: Yes (Life-Threatening, Hospitalization, Other)
  Sender: FDA-Public Use
  Company Number: GB-BRISTOL-MYERS SQUIBB COMPANY-14310486

PATIENT
  Age: 62 Year
  Sex: Female
  Weight: 68 kg

DRUGS (5)
  1. METFORMIN HCL [Suspect]
     Indication: DIABETES MELLITUS
     Dosage: DOSE REDUCED TO 1.2G/DAY
     Route: 048
     Dates: start: 20080622
  2. ENALAPRIL MALEATE [Concomitant]
     Indication: HYPERTENSION
     Route: 048
  3. LANSOPRAZOLE [Concomitant]
     Indication: DYSPEPSIA
     Route: 048
  4. LANTUS [Concomitant]
     Indication: DIABETES MELLITUS
     Route: 058
  5. TRIMIPRAMINE MALEATE [Concomitant]
     Indication: ANXIETY
     Route: 048

REACTIONS (2)
  - HYPOGLYCAEMIA [None]
  - METABOLIC ACIDOSIS [None]
